FAERS Safety Report 8387620-7 (Version None)
Quarter: 2012Q2

REPORT INFORMATION
  Report Type: 
  Country: None (occurrence: None)
  Receive Date: 20120525
  Receipt Date: 20120521
  Transmission Date: 20120825
  Serious: Yes (Other)
  Sender: FDA-Public Use
  Company Number: JP-PFIZER INC-2012025037

PATIENT
  Age: 78 Year
  Sex: Male
  Weight: 57 kg

DRUGS (15)
  1. RABEPRAZOLE SODIUM [Concomitant]
     Dosage: 10 MG DAILY
     Dates: start: 20111209
  2. WARFARIN SODIUM [Suspect]
     Dosage: 2 MG, DAILY
     Route: 048
     Dates: start: 20111207, end: 20120127
  3. LASIX [Concomitant]
     Dosage: 20 MG, DAILY
     Dates: start: 20111210, end: 20111214
  4. ZYVOX [Suspect]
     Indication: ENDOCARDITIS
     Dosage: 600 MG, 2X/DAY
     Route: 041
     Dates: start: 20111213, end: 20111221
  5. ALDACTONE [Concomitant]
     Dosage: 50 MG DAILY
     Dates: start: 20111215
  6. AZUCURENIN S [Concomitant]
     Dosage: 2 G DAILY
     Dates: end: 20111226
  7. LASIX [Concomitant]
     Dosage: 40 MG, DAILY
     Dates: start: 20111228, end: 20111228
  8. LOSARTAN POTASSIUM [Concomitant]
     Dosage: 25 MG DAILY
  9. CARVEDILOL [Concomitant]
     Dosage: 2.5 MG DAILY
  10. SUNRYTHM [Concomitant]
     Dosage: 150 MG DAILY
     Dates: start: 20111220
  11. BIAPENEM [Concomitant]
     Indication: ENDOCARDITIS
     Dosage: 0.3 G, 3X/DAY
     Route: 041
     Dates: start: 20111213, end: 20120106
  12. LASIX [Concomitant]
     Dosage: 60 MG, DAILY
     Dates: start: 20111215, end: 20111227
  13. ALDACTONE [Concomitant]
     Dosage: 25 MG DAILY
     Dates: start: 20111210, end: 20111214
  14. MIYA BM [Concomitant]
     Dosage: 3 G, UNK
     Dates: end: 20111226
  15. SUNRYTHM [Concomitant]
     Dosage: 150 MG DAILY
     Dates: end: 20111211

REACTIONS (2)
  - INTERNATIONAL NORMALISED RATIO INCREASED [None]
  - PLATELET COUNT DECREASED [None]
